FAERS Safety Report 6983457-1 (Version None)
Quarter: 2010Q3

REPORT INFORMATION
  Report Type: 
  Country: None (occurrence: None)
  Receive Date: 20100914
  Receipt Date: 20100914
  Transmission Date: 20110219
  Serious: Yes (Life-Threatening, Hospitalization, Other)
  Sender: FDA-Public Use
  Company Number: None

PATIENT
  Age: 78 Year
  Sex: Male
  Weight: 55.79 kg

DRUGS (2)
  1. WARFARIN SODIUM [Suspect]
     Indication: ATRIAL FIBRILLATION
     Dosage: PO
     Route: 048
     Dates: start: 19980305, end: 20100522
  2. ENOXAPARIN SODIUM [Suspect]
     Indication: SURGERY
     Dosage: 90 MG EVERY DAY SQ
     Route: 058
     Dates: start: 20100430, end: 20100522

REACTIONS (5)
  - ANAEMIA [None]
  - HAEMATURIA [None]
  - PERITONEAL HAEMATOMA [None]
  - PERITONEAL HAEMORRHAGE [None]
  - URINARY TRACT OBSTRUCTION [None]
